FAERS Safety Report 8857536 (Version 2)
Quarter: 2012Q4

REPORT INFORMATION
  Report Type: 
  Country: JP (occurrence: JP)
  Receive Date: 20121024
  Receipt Date: 20121105
  Transmission Date: 20130627
  Serious: Yes (Other)
  Sender: FDA-Public Use
  Company Number: JP-GLAXOSMITHKLINE-B0816527A

PATIENT
  Age: 73 None
  Sex: Female
  Weight: 47 kg

DRUGS (5)
  1. HEPSERA [Suspect]
     Indication: PRODUCT USED FOR UNKNOWN INDICATION
     Route: 048
     Dates: start: 20061026
  2. HEPSERA [Suspect]
     Indication: PRODUCT USED FOR UNKNOWN INDICATION
     Dosage: 10MG Per day
     Route: 048
     Dates: start: 20120715
  3. ZEFIX [Suspect]
     Indication: HEPATITIS B
     Dosage: 100MG Per day
     Route: 048
     Dates: start: 20050210
  4. BAYASPIRIN [Suspect]
     Indication: CEREBRAL INFARCTION
     Dosage: 100MG Per day
     Route: 048
     Dates: start: 20061214
  5. URSO [Concomitant]
     Indication: LIVER DISORDER
     Dosage: 200MG Three times per day
     Route: 048
     Dates: start: 20120405

REACTIONS (11)
  - Fanconi syndrome [Unknown]
  - Autonomic nervous system imbalance [Unknown]
  - Osteomalacia [Recovered/Resolved]
  - Blood alkaline phosphatase increased [Not Recovered/Not Resolved]
  - Hypophosphataemia [Not Recovered/Not Resolved]
  - Hypoaesthesia [Unknown]
  - Arthralgia [Unknown]
  - Pain in extremity [Unknown]
  - Pain [Unknown]
  - Gait disturbance [Unknown]
  - Bone pain [Unknown]
